FAERS Safety Report 16576524 (Version 1)
Quarter: 2019Q3

REPORT INFORMATION
  Report Type: Spontaneous
  Country: US (occurrence: US)
  Receive Date: 20190716
  Receipt Date: 20190716
  Transmission Date: 20191004
  Serious: Yes (Hospitalization)
  Sender: FDA-Public Use
  Company Number: US-SWEDISH ORPHAN BIOVITRUM-2018US1244

PATIENT
  Sex: Female
  Weight: 83.2 kg

DRUGS (1)
  1. ORFADIN [Suspect]
     Active Substance: NITISINONE
     Indication: TYROSINAEMIA
     Dosage: 60 MG IN THE MORNING AND 40 MG AT NIGHT
     Route: 048

REACTIONS (2)
  - Amino acid level increased [Unknown]
  - Treatment noncompliance [Not Recovered/Not Resolved]
